FAERS Safety Report 6273380-2 (Version None)
Quarter: 2009Q3

REPORT INFORMATION
  Report Type: 
  Country: None (occurrence: None)
  Receive Date: 20090715
  Receipt Date: 20090701
  Transmission Date: 20100115
  Serious: Yes (Other)
  Sender: FDA-Public Use
  Company Number: 1000006924

PATIENT
  Age: 48 Year
  Sex: Male

DRUGS (2)
  1. LEXAPRO [Suspect]
     Indication: DEPRESSION
     Dosage: 10 MG (10 MG, 1 IN 1 D), ORAL
     Route: 048
     Dates: start: 20090601, end: 20090608
  2. MIANSERIN (10 MILLIGRAM) [Concomitant]

REACTIONS (2)
  - CONVULSION [None]
  - RESPIRATORY TRACT INFECTION [None]
